FAERS Safety Report 10441092 (Version 1)
Quarter: 2014Q3

REPORT INFORMATION
  Report Type: Spontaneous
  Country: US (occurrence: None)
  Receive Date: 20140908
  Receipt Date: 20140908
  Transmission Date: 20150326
  Serious: Yes (Disabling, Other)
  Sender: FDA-Public Use
  Company Number: None

PATIENT
  Age: 25 Year
  Sex: Female
  Weight: 47.63 kg

DRUGS (2)
  1. VYVANSE [Suspect]
     Active Substance: LISDEXAMFETAMINE DIMESYLATE
     Indication: LEARNING DISABILITY
     Route: 048
     Dates: start: 20100601, end: 20140728
  2. VYVANSE [Suspect]
     Active Substance: LISDEXAMFETAMINE DIMESYLATE
     Indication: ATTENTION DEFICIT/HYPERACTIVITY DISORDER
     Route: 048
     Dates: start: 20100601, end: 20140728

REACTIONS (19)
  - Heart rate increased [None]
  - Anxiety [None]
  - Hypoaesthesia [None]
  - Pain [None]
  - Dizziness [None]
  - Syncope [None]
  - Chest pain [None]
  - Nervousness [None]
  - Pallor [None]
  - Decreased appetite [None]
  - Weight decreased [None]
  - Rash [None]
  - Visual impairment [None]
  - Feeling cold [None]
  - Hypertension [None]
  - Temperature intolerance [None]
  - Paraesthesia [None]
  - Dry mouth [None]
  - Headache [None]

NARRATIVE: CASE EVENT DATE: 20140804
